FAERS Safety Report 6381074-8 (Version None)
Quarter: 2009Q3

REPORT INFORMATION
  Report Type: 
  Country: None (occurrence: None)
  Receive Date: 20090924
  Receipt Date: 20090911
  Transmission Date: 20100115
  Serious: Yes (Hospitalization)
  Sender: FDA-Public Use
  Company Number: 2009S1000287

PATIENT
  Age: 21 Year
  Sex: Male

DRUGS (3)
  1. ACITRETIN [Suspect]
     Indication: PUSTULAR PSORIASIS
     Dosage: 35 MG;QD;PO
     Route: 048
  2. FLUOXETINE [Suspect]
     Indication: DEPRESSIVE SYMPTOM
     Dosage: 10 MG;QD
  3. CYCLOSPORINE [Suspect]
     Indication: PSORIASIS
     Dosage: 200 MG;QD;

REACTIONS (5)
  - CONDITION AGGRAVATED [None]
  - DEPRESSION [None]
  - DRUG INTERACTION [None]
  - NO THERAPEUTIC RESPONSE [None]
  - PSORIASIS [None]
